FAERS Safety Report 8012202-6 (Version None)
Quarter: 2011Q4

REPORT INFORMATION
  Report Type: 
  Country: None (occurrence: None)
  Receive Date: 20111228
  Receipt Date: 20111222
  Transmission Date: 20120403
  Serious: Yes (Hospitalization, Disabling)
  Sender: FDA-Public Use
  Company Number: GXKR2011DE003663

PATIENT

DRUGS (6)
  1. GABAPENTIN [Suspect]
     Indication: NEUROPATHY PERIPHERAL
     Dosage: 3 X 1
     Route: 048
     Dates: start: 20110801, end: 20110804
  2. DURAGESIC-100 [Concomitant]
     Route: 062
  3. METOPROLOL SUCCINATE [Concomitant]
     Route: 048
  4. AMITRIPTYLINE [Concomitant]
     Dosage: 25 MG, QD
     Route: 048
  5. MARCUMAR [Concomitant]
  6. OMEPRAZOLE [Concomitant]
     Route: 048

REACTIONS (1)
  - RHABDOMYOLYSIS [None]
